FAERS Safety Report 9323585 (Version 1)
Quarter: 2013Q2

REPORT INFORMATION
  Report Type: Spontaneous
  Country: NO (occurrence: NO)
  Receive Date: 20130603
  Receipt Date: 20130603
  Transmission Date: 20140414
  Serious: Yes (Hospitalization, Disabling)
  Sender: FDA-Public Use
  Company Number: NO-JNJFOC-20130300948

PATIENT
  Age: 17 Year
  Sex: Female

DRUGS (9)
  1. REMICADE [Suspect]
     Indication: CROHN^S DISEASE
     Dosage: 1ST DOSE
     Route: 042
     Dates: start: 201303
  2. ZOFRAN [Concomitant]
     Route: 065
  3. VALLERGAN [Concomitant]
     Route: 065
  4. PREDNISOLON [Concomitant]
     Route: 065
  5. NEXIUM [Concomitant]
     Route: 065
  6. ZANTAC [Concomitant]
     Route: 065
  7. LYRICA [Concomitant]
     Route: 065
  8. IMUREL [Concomitant]
     Route: 065
  9. CLONIDINE [Concomitant]
     Route: 065

REACTIONS (3)
  - Neuropathy peripheral [Recovered/Resolved with Sequelae]
  - Abdominal pain upper [Recovering/Resolving]
  - Temperature difference of extremities [Recovering/Resolving]
